FAERS Safety Report 13047102 (Version 1)
Quarter: 2016Q4

REPORT INFORMATION
  Report Type: Not Available
  Country: US (occurrence: US)
  Receive Date: 20161220
  Receipt Date: 20161220
  Transmission Date: 20170207
  Serious: Yes (Hospitalization)
  Sender: FDA-Public Use
  Company Number: US-HISAMITSU-2016-US-009696

PATIENT
  Age: 73 Year
  Sex: Female
  Weight: 58.97 kg

DRUGS (8)
  1. UNSPECIFIED ANTIDEPRESSANT [Concomitant]
     Dosage: UNKNOWN
     Route: 065
  2. ASPIRIN. [Concomitant]
     Active Substance: ASPIRIN
     Dosage: UNKNOWN
     Route: 065
  3. LASIX [Concomitant]
     Active Substance: FUROSEMIDE
     Dosage: UNKNOWN
     Route: 065
  4. POTASSIUM [Concomitant]
     Active Substance: POTASSIUM
     Dosage: UNKNOWN
     Route: 065
  5. UNSPECIFIED BLOOD THINNER [Concomitant]
     Active Substance: UNSPECIFIED INGREDIENT
     Dosage: UNKNOWN
     Route: 065
  6. SALONPAS-HOT CAPSICUM [Suspect]
     Active Substance: CAPSICUM
     Dosage: 1 PATCH EVERY 8 HOURS
     Route: 061
     Dates: end: 20161129
  7. UNSPECIFIED MEDICATION FOR HYPERTENSION [Concomitant]
     Dosage: UNKNOWN
     Route: 065
  8. LIPITOR [Concomitant]
     Active Substance: ATORVASTATIN CALCIUM
     Dosage: UNKNOWN
     Route: 065

REACTIONS (4)
  - Application site irritation [Unknown]
  - Application site pain [Unknown]
  - Myocardial infarction [Unknown]
  - Protein total increased [Unknown]
